FAERS Safety Report 8654190 (Version 4)
Quarter: 2012Q4

REPORT INFORMATION
  Report Type: 
  Country: JP (occurrence: JP)
  Receive Date: 20120709
  Receipt Date: 20121210
  Transmission Date: 20130627
  Serious: Yes (Hospitalization)
  Sender: FDA-Public Use
  Company Number: PHHY2012JP053878

PATIENT
  Sex: Female

DRUGS (9)
  1. CICLOSPORIN [Suspect]
     Indication: DERMATOMYOSITIS
     Dosage: 400 mg, daily
     Route: 048
     Dates: start: 20110731, end: 20110802
  2. CICLOSPORIN [Suspect]
     Dosage: 300 mg, daily
     Route: 048
     Dates: start: 20110803, end: 20110807
  3. CICLOSPORIN [Suspect]
     Dosage: 200 mg, daily
     Route: 048
     Dates: start: 20110808, end: 20111026
  4. CICLOSPORIN [Suspect]
     Dosage: 150 mg, daily
     Route: 048
     Dates: start: 20111027, end: 20111208
  5. CICLOSPORIN [Suspect]
     Dosage: 100 mg, daily
     Route: 048
     Dates: start: 20111209, end: 20111214
  6. CICLOSPORIN [Suspect]
     Dosage: 50 mg, daily
     Route: 048
     Dates: start: 20111215, end: 20120105
  7. PREDNISOLONE [Suspect]
     Indication: DERMATOMYOSITIS
     Dosage: 30 mg, daily
     Route: 048
  8. STEROIDS NOS [Concomitant]
     Indication: DERMATOMYOSITIS
  9. CYCLOPHOSPHAMIDE [Concomitant]
     Indication: DERMATOMYOSITIS

REACTIONS (5)
  - Pancreatic cyst [Recovered/Resolved]
  - Abdominal pain [Unknown]
  - Back pain [Unknown]
  - Pancreatitis [Recovered/Resolved]
  - Amylase increased [Unknown]
